FAERS Safety Report 8560402-9 (Version None)
Quarter: 2012Q3

REPORT INFORMATION
  Report Type: 
  Country: None (occurrence: None)
  Receive Date: 20120802
  Receipt Date: 20120719
  Transmission Date: 20120928
  Serious: Yes (Life-Threatening)
  Sender: FDA-Public Use
  Company Number: AU-ROCHE-1096064

PATIENT
  Age: 64 Year
  Sex: Male
  Weight: 102 kg

DRUGS (5)
  1. MOXIFLOXACIN [Suspect]
     Indication: PRODUCT USED FOR UNKNOWN INDICATION
     Dates: start: 20111218
  2. AMOXICILLIN [Suspect]
     Indication: PRODUCT USED FOR UNKNOWN INDICATION
     Dates: start: 20120110
  3. MAGNESIUM CHLORIDE [Concomitant]
     Dates: start: 20110805, end: 20111218
  4. CEFTRIAXONE [Suspect]
     Indication: PRODUCT USED FOR UNKNOWN INDICATION
     Route: 042
     Dates: start: 20111128, end: 20111214
  5. METRONIDAZOLE [Suspect]
     Indication: PRODUCT USED FOR UNKNOWN INDICATION
     Dates: start: 20111128, end: 20120115

REACTIONS (5)
  - RASH GENERALISED [None]
  - DECREASED APPETITE [None]
  - LETHARGY [None]
  - SWELLING [None]
  - HICCUPS [None]
